FAERS Safety Report 23234580 (Version 1)
Quarter: 2023Q4

REPORT INFORMATION
  Report Type: Other
  Country: ES (occurrence: ES)
  Receive Date: 20231128
  Receipt Date: 20231128
  Transmission Date: 20240110
  Serious: Yes (Other)
  Sender: FDA-Public Use
  Company Number: None

PATIENT
  Sex: Male
  Weight: 140 kg

DRUGS (1)
  1. VESICARE [Suspect]
     Active Substance: SOLIFENACIN SUCCINATE
     Indication: Benign prostatic hyperplasia
     Dosage: 1 DF, ONCE DAILY (1 TABLET IN THE MORNING)
     Route: 048
     Dates: start: 20231110

REACTIONS (4)
  - Diarrhoea [Recovering/Resolving]
  - Gastrointestinal pain [Recovering/Resolving]
  - Orchitis noninfective [Recovering/Resolving]
  - Respiratory distress [Recovering/Resolving]

NARRATIVE: CASE EVENT DATE: 20231110
